FAERS Safety Report 7609269-3 (Version None)
Quarter: 2011Q3

REPORT INFORMATION
  Report Type: 
  Country: None (occurrence: None)
  Receive Date: 20110713
  Receipt Date: 20110713
  Transmission Date: 20111222
  Serious: Yes (Hospitalization)
  Sender: FDA-Public Use
  Company Number: None

PATIENT
  Age: 55 Year
  Sex: Female
  Weight: 77.1115 kg

DRUGS (2)
  1. VICTOZA [Suspect]
     Indication: BLOOD GLUCOSE INCREASED
     Dosage: 6.8 ONCE PER DAY IM
     Route: 030
     Dates: start: 20100330, end: 20100424
  2. VICTOZA [Suspect]
     Indication: BLOOD GLUCOSE INCREASED
     Dosage: 6.8 ONCE PER DAY IM
     Route: 030
     Dates: start: 20100501, end: 20100523

REACTIONS (7)
  - MALAISE [None]
  - VOMITING [None]
  - ABDOMINAL PAIN LOWER [None]
  - EATING DISORDER [None]
  - GASTROINTESTINAL VIRAL INFECTION [None]
  - ABDOMINAL PAIN UPPER [None]
  - DIARRHOEA [None]
